FAERS Safety Report 7792339-7 (Version None)
Quarter: 2011Q4

REPORT INFORMATION
  Report Type: 
  Country: None (occurrence: None)
  Receive Date: 20111003
  Receipt Date: 20110928
  Transmission Date: 20120403
  Serious: Yes (Other)
  Sender: FDA-Public Use
  Company Number: JP-PFIZER INC-2011219161

PATIENT
  Age: 76 Year
  Sex: Male

DRUGS (1)
  1. VFEND [Suspect]
     Indication: BRONCHOPULMONARY ASPERGILLOSIS
     Dosage: 300 MG, 1X/DAY
     Route: 048
     Dates: start: 20110201

REACTIONS (1)
  - GAMMA-GLUTAMYLTRANSFERASE INCREASED [None]
